FAERS Safety Report 17828300 (Version 2)
Quarter: 2020Q3

REPORT INFORMATION
  Report Type: Spontaneous
  Country: FR (occurrence: FR)
  Receive Date: 20200527
  Receipt Date: 20200716
  Transmission Date: 20201102
  Serious: Yes (Hospitalization, Other)
  Sender: FDA-Public Use
  Company Number: FR-GLAXOSMITHKLINE-FR2020085506

PATIENT
  Age: 11 Year
  Sex: Female
  Weight: 32 kg

DRUGS (1)
  1. LAMICTAL [Suspect]
     Active Substance: LAMOTRIGINE
     Indication: EPILEPSY
     Dosage: 80 MG, QD(PROGRESSIVE DOSAGE WITH ESCALATION FROM 10 MG / DAY TO 100 MG / DAY)
     Route: 048
     Dates: start: 20200310, end: 20200506

REACTIONS (1)
  - Drug reaction with eosinophilia and systemic symptoms [Recovering/Resolving]

NARRATIVE: CASE EVENT DATE: 20200422
